FAERS Safety Report 15229768 (Version 2)
Quarter: 2019Q3

REPORT INFORMATION
  Report Type: Spontaneous
  Country: US (occurrence: US)
  Receive Date: 20180802
  Receipt Date: 20190806
  Transmission Date: 20191004
  Serious: Yes (Other)
  Sender: FDA-Public Use
  Company Number: US-ACCORD-062658

PATIENT
  Age: 62 Year
  Sex: Female
  Weight: 53.98 kg

DRUGS (26)
  1. TRASTUZUMAB. [Suspect]
     Active Substance: TRASTUZUMAB
     Indication: INVASIVE DUCTAL BREAST CARCINOMA
     Dates: start: 20150630, end: 20151013
  2. ALLEGRA [Concomitant]
     Active Substance: FEXOFENADINE HYDROCHLORIDE
     Dosage: STRENGTH: 180 MG?TAKE 1 PO DAILY
     Route: 048
     Dates: start: 20090101
  3. TOLTERODINE [Concomitant]
     Active Substance: TOLTERODINE
     Dosage: STRENGTH: 2 MG?TAKE 1 CAPSULE BID
     Route: 048
  4. EMLA [Concomitant]
     Active Substance: LIDOCAINE\PRILOCAINE
     Dosage: STRENGTH: 2.5%-2.5% CREAM?APPLY PEA SIZED AMOUNT TO PORT SITE 60 MIN PRIOR TO ACCESS.
  5. ONDANSETRON [Concomitant]
     Active Substance: ONDANSETRON
     Indication: NAUSEA
     Dosage: STRENGTH: 8 MG?TAKE 1 PO Q8H PRN
     Route: 048
     Dates: start: 20150619
  6. PRILOSEC [Concomitant]
     Active Substance: OMEPRAZOLE MAGNESIUM
     Dosage: STRENGTH: 20 MG?TAKE 1 CAPSULE ENTERIC COATED DAILY
     Route: 048
     Dates: start: 20150619
  7. CIPROFLOXACIN. [Concomitant]
     Active Substance: CIPROFLOXACIN
     Dates: start: 20090101
  8. PHENAZOPYRIDINE. [Concomitant]
     Active Substance: PHENAZOPYRIDINE
     Dates: start: 20090101
  9. ATIVAN [Concomitant]
     Active Substance: LORAZEPAM
     Dosage: STRENGTH: 1 MG?TAKE BY MOUTH 1 HOUR PRIOR TO PROCEDURE
     Route: 048
     Dates: start: 2010, end: 2015
  10. DEXAMETHASONE. [Concomitant]
     Active Substance: DEXAMETHASONE
     Dosage: STRENGTH: 2 MG?TAKE 2 TABLET IN AM ON DAY 2, THEN 2 TABS BID ON DAYS 3-4 FOLLOWING CHEMOTHERAPY
     Route: 048
  11. PARAPLATIN [Suspect]
     Active Substance: CARBOPLATIN
     Indication: INVASIVE DUCTAL BREAST CARCINOMA
     Dates: start: 20150630, end: 20151013
  12. TERCONAZOLE. [Concomitant]
     Active Substance: TERCONAZOLE
     Dates: start: 20090101, end: 20160101
  13. TAMOXIFEN [Concomitant]
     Active Substance: TAMOXIFEN
     Dates: start: 20151201
  14. MUCINEX [Concomitant]
     Active Substance: GUAIFENESIN
     Dosage: STRENGTH: 600 MG TABLET (SUSTAINED ACTION)?TAKE 1 PO Q12H
     Route: 048
  15. ACETYLCYSTEINE. [Concomitant]
     Active Substance: ACETYLCYSTEINE
     Route: 048
     Dates: start: 20090101
  16. SINGULAIR [Concomitant]
     Active Substance: MONTELUKAST SODIUM
     Dosage: STRENGTH: 10 MG?TAKE 1 PO DAILY
     Route: 048
  17. PERTUZUMAB. [Suspect]
     Active Substance: PERTUZUMAB
     Indication: INVASIVE DUCTAL BREAST CARCINOMA
     Dates: start: 20150630, end: 20151013
  18. CALCIUM GLUCONATE. [Concomitant]
     Active Substance: CALCIUM GLUCONATE
     Route: 048
  19. PROCHLORPERAZINE. [Concomitant]
     Active Substance: PROCHLORPERAZINE
     Indication: NAUSEA
     Dosage: STRENGTH: 10 MG?TAKE 1 PO Q6H PRN
     Route: 048
     Dates: start: 20150619
  20. DOCETAXEL ACCORD [Suspect]
     Active Substance: DOCETAXEL
     Indication: INVASIVE DUCTAL BREAST CARCINOMA
     Dosage: DOSAGE: 125-105 MG
     Route: 042
     Dates: start: 20150630, end: 20151013
  21. AMBIEN [Concomitant]
     Active Substance: ZOLPIDEM TARTRATE
     Indication: SOMNOLENCE
     Dosage: STRENGTH: 5 MG ?TAKE 1 PO QHS PRN
     Route: 048
  22. ESTRADIOL. [Concomitant]
     Active Substance: ESTRADIOL
     Dosage: STRENGTH: 0.01% CREAM WITH APPLICATOR?SMALL PEA SIZE AMOUNT EXTERNALLY ON LABIA AND PERINEUM
     Dates: start: 20140827
  23. MONTELUKAST [Concomitant]
     Active Substance: MONTELUKAST SODIUM
     Dates: start: 20090101
  24. SALBUTAMOL [Concomitant]
     Active Substance: ALBUTEROL
     Dosage: STRENGTH: 90 MCG HFA AEROSOL WITH ADAPTER (GRAM)?TAKE 1 INHALATION BY INHALATION AS DIRECTED
     Dates: start: 20090101, end: 20170101
  25. FISH OIL [Concomitant]
     Active Substance: FISH OIL
     Route: 048
  26. XANAX [Concomitant]
     Active Substance: ALPRAZOLAM
     Dosage: STRENGTH: 0.5 MG?TAKE 1 TAB 30-60 MIN PRIOR TO PROCEDURE
     Route: 048

REACTIONS (1)
  - Alopecia [Not Recovered/Not Resolved]

NARRATIVE: CASE EVENT DATE: 20160413
